FAERS Safety Report 8294830-6 (Version None)
Quarter: 2012Q2

REPORT INFORMATION
  Report Type: 
  Country: None (occurrence: None)
  Receive Date: 20120418
  Receipt Date: 20120410
  Transmission Date: 20120825
  Serious: Yes (Hospitalization)
  Sender: FDA-Public Use
  Company Number: JP-NAPPMUNDI-MAG-2012-0002071

PATIENT
  Sex: Male

DRUGS (3)
  1. MUCOSTA [Concomitant]
     Indication: PRODUCT USED FOR UNKNOWN INDICATION
     Dosage: 100 MG, DAILY
     Route: 048
     Dates: start: 20110607
  2. BUPRENORPHINE [Suspect]
     Indication: BACK PAIN
     Dosage: 5 MCG, Q1H
     Route: 062
     Dates: start: 20120216, end: 20120223
  3. NSAID'S [Concomitant]
     Indication: ANALGESIC INTERVENTION SUPPORTIVE THERAPY

REACTIONS (1)
  - ACUTE MYOCARDIAL INFARCTION [None]
